FAERS Safety Report 25103067 (Version 1)
Quarter: 2025Q1

REPORT INFORMATION
  Report Type: Spontaneous
  Country: US (occurrence: US)
  Receive Date: 20250321
  Receipt Date: 20250321
  Transmission Date: 20250409
  Serious: Yes (Other)
  Sender: ELI LILLY AND COMPANY
  Company Number: US-ELI_LILLY_AND_COMPANY-US202503011162

PATIENT
  Age: 43 Year
  Sex: Female

DRUGS (6)
  1. VERZENIO [Suspect]
     Active Substance: ABEMACICLIB
     Indication: Breast cancer stage II
     Route: 065
     Dates: start: 2023, end: 2024
  2. VERZENIO [Suspect]
     Active Substance: ABEMACICLIB
     Indication: Metastases to bone
  3. VERZENIO [Suspect]
     Active Substance: ABEMACICLIB
     Indication: Metastases to liver
  4. LETROZOLE [Suspect]
     Active Substance: LETROZOLE
     Indication: Breast cancer stage II
     Route: 065
     Dates: start: 2023, end: 2024
  5. LETROZOLE [Suspect]
     Active Substance: LETROZOLE
     Indication: Metastases to bone
  6. LETROZOLE [Suspect]
     Active Substance: LETROZOLE
     Indication: Metastases to liver

REACTIONS (2)
  - Malignant neoplasm progression [Unknown]
  - Drug ineffective [Unknown]

NARRATIVE: CASE EVENT DATE: 20240101
